FAERS Safety Report 17394595 (Version 3)
Quarter: 2020Q1

REPORT INFORMATION
  Report Type: Spontaneous
  Country: TR (occurrence: TR)
  Receive Date: 20200210
  Receipt Date: 20200325
  Transmission Date: 20200409
  Serious: Yes (Hospitalization, Other)
  Sender: FDA-Public Use
  Company Number: TR-TEVA-2020-TR-1183377

PATIENT
  Sex: Female

DRUGS (6)
  1. PREDNOL [Concomitant]
     Indication: RESPIRATORY DISORDER
     Route: 042
  2. BUDECORT [Suspect]
     Active Substance: BUDESONIDE
     Indication: INFLUENZA
  3. PREDNOL [Concomitant]
     Indication: INFLUENZA
  4. BUDECORT [Suspect]
     Active Substance: BUDESONIDE
     Indication: RESPIRATORY DISORDER
  5. BUDECORT [Suspect]
     Active Substance: BUDESONIDE
     Indication: ASTHMA
  6. PREDNOL [Concomitant]
     Indication: ASTHMA

REACTIONS (7)
  - Aphonia [Recovered/Resolved]
  - Laryngitis fungal [Recovered/Resolved]
  - Oral fungal infection [Recovered/Resolved]
  - Bronchopulmonary aspergillosis [Unknown]
  - Fungal infection [Unknown]
  - Product substitution issue [Unknown]
  - Dysphonia [Recovered/Resolved]
